FAERS Safety Report 6173184-5 (Version None)
Quarter: 2009Q2

REPORT INFORMATION
  Report Type: 
  Country: None (occurrence: None)
  Receive Date: 20090430
  Receipt Date: 20090421
  Transmission Date: 20091009
  Serious: Yes (Hospitalization)
  Sender: FDA-Public Use
  Company Number: CN-PFIZER INC-2009203632

PATIENT

DRUGS (1)
  1. CEFOPERAZONE SODIUM, SULBACTAM SODIUM [Suspect]
     Indication: BRONCHITIS
     Dosage: 2 G, 1X/DAY
     Route: 042

REACTIONS (1)
  - ALCOHOL INTOLERANCE [None]
